FAERS Safety Report 7779357-X (Version None)
Quarter: 2011Q3

REPORT INFORMATION
  Report Type: 
  Country: None (occurrence: None)
  Receive Date: 20110926
  Receipt Date: 20110912
  Transmission Date: 20111222
  Serious: Yes (Other)
  Sender: FDA-Public Use
  Company Number: CO-AMGEN-COLCT2010002666

PATIENT
  Age: 44 Year
  Sex: Male

DRUGS (5)
  1. METHOTREXATE [Concomitant]
     Dosage: UNK
  2. ETANERCEPT [Suspect]
     Dosage: UNK
     Route: 058
     Dates: end: 20110101
  3. PREDNISOLONE [Concomitant]
     Dosage: UNK
  4. ETANERCEPT [Suspect]
     Indication: RHEUMATOID ARTHRITIS
     Dosage: 50 MG, QWK
     Route: 058
     Dates: start: 20090911, end: 20100901
  5. CALCIUM CARBONATE [Concomitant]
     Dosage: UNK

REACTIONS (2)
  - HIP ARTHROPLASTY [None]
  - ARTHROPATHY [None]
